FAERS Safety Report 7941408-7 (Version None)
Quarter: 2011Q4

REPORT INFORMATION
  Report Type: 
  Country: None (occurrence: None)
  Receive Date: 20111122
  Receipt Date: 20111111
  Transmission Date: 20120403
  Serious: Yes (Other)
  Sender: FDA-Public Use
  Company Number: 11-711

PATIENT
  Age: 82 Year
  Sex: Male
  Weight: 98 kg

DRUGS (4)
  1. METOPROLOL TARTRATE [Concomitant]
  2. ALEVE (CAPLET) [Suspect]
     Indication: ANALGESIC THERAPY
     Dosage: 1DF; QD; ORAL
     Route: 048
     Dates: start: 20111106
  3. VICODIN [Concomitant]
  4. AMLODIPINE [Concomitant]

REACTIONS (2)
  - CHOKING [None]
  - FOREIGN BODY [None]
